FAERS Safety Report 6301253-5 (Version None)
Quarter: 2009Q3

REPORT INFORMATION
  Report Type: 
  Country: None (occurrence: None)
  Receive Date: 20090806
  Receipt Date: 20090806
  Transmission Date: 20100115
  Serious: Yes (Life-Threatening)
  Sender: FDA-Public Use
  Company Number: None

PATIENT
  Sex: Male
  Weight: 113.3993 kg

DRUGS (4)
  1. PREDNISONE TAB [Suspect]
     Indication: BRONCHITIS
  2. LEVAQUIN [Suspect]
     Indication: BRONCHITIS
  3. ALTACE [Suspect]
     Dosage: 1 DAY ORAL
     Route: 048
  4. LIPITOR [Suspect]
     Dosage: 1 DAY ORAL
     Route: 048

REACTIONS (2)
  - BLOOD PRESSURE INCREASED [None]
  - PALPITATIONS [None]
